FAERS Safety Report 5099642-2 (Version None)
Quarter: 2006Q3

REPORT INFORMATION
  Report Type: 
  Country: None (occurrence: None)
  Receive Date: 20060906
  Receipt Date: 20060823
  Transmission Date: 20061208
  Serious: Yes (Other)
  Sender: FDA-Public Use
  Company Number: 2006101629

PATIENT
  Age: 69 Year
  Sex: Female

DRUGS (8)
  1. LYRICA [Suspect]
     Indication: NEURALGIA
     Dosage: 150 MG (75 MG, 2 IN 1 D), ORAL
     Route: 048
     Dates: start: 20060101
  2. PROGRAL (PROPRANOLOL) [Concomitant]
  3. BETASERC (BETAHISTINE HYDROCHLORIDE) [Concomitant]
  4. CIPROFLOXACIN [Concomitant]
  5. DIFORMIN RETARD (METFORMIN HYDROCHLORIDE) [Concomitant]
  6. PROTAPHANE HM (INSULIN HUMAN INJECTION, ISOPHANE) [Concomitant]
  7. AMITRID (AMILORIDE HYDROCHLORIDE, HYDROCHLOROTHIAZIDE) [Concomitant]
  8. ACTRAPID (INSULIN) [Concomitant]

REACTIONS (1)
  - INTRAOCULAR PRESSURE INCREASED [None]
